FAERS Safety Report 17367708 (Version 4)
Quarter: 2020Q1

REPORT INFORMATION
  Report Type: Spontaneous
  Country: US (occurrence: US)
  Receive Date: 20200204
  Receipt Date: 20200227
  Transmission Date: 20200409
  Serious: Yes (Other)
  Sender: FDA-Public Use
  Company Number: US-JNJFOC-20200141899

PATIENT
  Age: 44 Year
  Sex: Female
  Weight: 66.56 kg

DRUGS (5)
  1. INVEGA [Suspect]
     Active Substance: PALIPERIDONE
     Indication: PRODUCT USED FOR UNKNOWN INDICATION
     Route: 048
     Dates: start: 201805
  2. TRAZODONE [Concomitant]
     Active Substance: TRAZODONE HYDROCHLORIDE
     Indication: SLEEP DISORDER THERAPY
     Dosage: 100 MG TO 200 MG AS NEEDED
     Route: 065
     Dates: start: 201805
  3. INVEGA SUSTENNA [Suspect]
     Active Substance: PALIPERIDONE PALMITATE
     Dosage: PRESCRIPTION NUMBER: 5045856301
     Route: 030
     Dates: start: 201901, end: 201912
  4. INVEGA SUSTENNA [Suspect]
     Active Substance: PALIPERIDONE PALMITATE
     Indication: PRODUCT USED FOR UNKNOWN INDICATION
     Dosage: PRESCRIPTION NUMBER: 5045856401
     Route: 030
     Dates: start: 201805, end: 201812
  5. INVEGA SUSTENNA [Suspect]
     Active Substance: PALIPERIDONE PALMITATE
     Dosage: PRESCRIPTION NUMBER: 5045856401
     Route: 030
     Dates: start: 20200113

REACTIONS (5)
  - Product dose omission [Unknown]
  - Hallucination, auditory [Not Recovered/Not Resolved]
  - Off label use [Unknown]
  - Drug ineffective [Unknown]
  - Inappropriate schedule of product administration [Unknown]

NARRATIVE: CASE EVENT DATE: 201805
